FAERS Safety Report 7289473-7 (Version None)
Quarter: 2011Q1

REPORT INFORMATION
  Report Type: 
  Country: None (occurrence: None)
  Receive Date: 20110211
  Receipt Date: 20110209
  Transmission Date: 20110831
  Serious: Yes (Death, Hospitalization)
  Sender: FDA-Public Use
  Company Number: BR-ABBOTT-10P-020-0625878-00

PATIENT
  Sex: Female
  Weight: 54 kg

DRUGS (8)
  1. LOSARTAN POTASSIUM [Concomitant]
     Indication: HYPERTENSION
     Route: 048
     Dates: start: 20080101
  2. ACETYLSALICYLIC ACID [Concomitant]
     Indication: CARDIOVASCULAR DISORDER
     Route: 048
     Dates: start: 20020101
  3. LEFLUNOMIDE [Concomitant]
     Indication: RHEUMATOID ARTHRITIS
     Route: 048
     Dates: start: 20020101
  4. CILOSTAZOL [Suspect]
     Indication: CARDIOVASCULAR DISORDER
     Route: 048
     Dates: start: 20020101
  5. DIPYRONE [Concomitant]
     Indication: MIGRAINE
     Route: 048
  6. HUMIRA [Suspect]
     Indication: RHEUMATOID ARTHRITIS
     Route: 030
  7. HUMIRA [Suspect]
     Route: 058
  8. ATENOLOL [Concomitant]
     Indication: ANGINA PECTORIS
     Route: 048
     Dates: start: 20040101

REACTIONS (5)
  - HYPERTENSION [None]
  - BRONCHOPNEUMONIA [None]
  - PNEUMONIA [None]
  - RESPIRATORY FAILURE [None]
  - INCORRECT ROUTE OF DRUG ADMINISTRATION [None]
